FAERS Safety Report 11324941 (Version 1)
Quarter: 2015Q3

REPORT INFORMATION
  Report Type: Spontaneous
  Country: US (occurrence: US)
  Receive Date: 20150730
  Receipt Date: 20150730
  Transmission Date: 20151125
  Serious: Yes (Other)
  Sender: FDA-Public Use
  Company Number: US-SIGMA-TAU US-2015STPI000496

PATIENT
  Age: 7 Year
  Sex: Male

DRUGS (5)
  1. ONCASPAR [Suspect]
     Active Substance: PEGASPARGASE
     Dosage: 10000 TO 14000 EACH RE-INDUCTION
  2. METHOTREXATE SODIUM. [Suspect]
     Active Substance: METHOTREXATE SODIUM
     Route: 037
  3. DEXAMETHASONE. [Suspect]
     Active Substance: DEXAMETHASONE
  4. ONCASPAR [Suspect]
     Active Substance: PEGASPARGASE
     Indication: ACUTE LYMPHOCYTIC LEUKAEMIA
     Dosage: 3000 IU/M2, AT INDUCTION
  5. PREDNISONE. [Suspect]
     Active Substance: PREDNISONE

REACTIONS (3)
  - Vasculitis cerebral [Unknown]
  - Hypertriglyceridaemia [Unknown]
  - Headache [Unknown]
